FAERS Safety Report 6894256-3 (Version None)
Quarter: 2010Q3

REPORT INFORMATION
  Report Type: 
  Country: None (occurrence: None)
  Receive Date: 20100728
  Receipt Date: 20100412
  Transmission Date: 20110219
  Serious: Yes (Other)
  Sender: FDA-Public Use
  Company Number: 005305

PATIENT
  Sex: Female
  Weight: 87 kg

DRUGS (4)
  1. CERTOLIZUMAB PEGOL (CERTOLIZUMAB PEGOL) [Suspect]
     Indication: RHEUMATOID ARTHRITIS
     Dosage: 400 MG, TOTAL : 3 DOSES SUBCUTANEOUS
     Route: 058
     Dates: start: 20091202, end: 20100113
  2. ARAVA [Concomitant]
  3. PREDNISOLONE [Concomitant]
  4. IBUPROFEN [Concomitant]

REACTIONS (2)
  - DRUG ERUPTION [None]
  - MALAISE [None]
